FAERS Safety Report 6732769-5 (Version None)
Quarter: 2010Q2

REPORT INFORMATION
  Report Type: 
  Country: None (occurrence: None)
  Receive Date: 20100519
  Receipt Date: 20100511
  Transmission Date: 20101027
  Serious: No
  Sender: FDA-Public Use
  Company Number: US-B.I. PHARMACEUTICALS,INC./RIDGEFIELD-2010-BP-04747BP

PATIENT
  Age: 35 Year
  Sex: Male

DRUGS (2)
  1. MIRAPEX [Suspect]
     Indication: PARKINSON'S DISEASE
     Dosage: 1.5 MG
     Dates: start: 20100401
  2. SINEMET [Concomitant]
     Dates: start: 20090101

REACTIONS (1)
  - MEDICATION RESIDUE [None]
